FAERS Safety Report 9505774 (Version 1)
Quarter: 2013Q1

REPORT INFORMATION
  Report Type: Spontaneous
  Country: US (occurrence: None)
  Receive Date: 20130225
  Receipt Date: 20130225
  Transmission Date: 20140127
  Serious: Yes (Hospitalization)
  Sender: FDA-Public Use
  Company Number: 2012-095

PATIENT
  Age: 72 Year
  Sex: Male

DRUGS (3)
  1. PRIALT [Suspect]
     Indication: PAIN
     Dosage: ONCE AN HOUR
     Route: 037
     Dates: end: 20120117
  2. PRIALT [Suspect]
     Indication: POST LAMINECTOMY SYNDROME
     Dosage: ONCE AN HOUR
     Route: 037
     Dates: end: 20120117
  3. DILAUDID (HYDROMORPHONE HYDROCHLORIDE) INJECTION [Suspect]
     Dosage: ONCE AN HOUR
     Route: 037
     Dates: end: 20120117

REACTIONS (3)
  - Dizziness [None]
  - Nausea [None]
  - Hallucination [None]
